FAERS Safety Report 7427635-6 (Version None)
Quarter: 2011Q1

REPORT INFORMATION
  Report Type: 
  Country: None (occurrence: None)
  Receive Date: 20110302
  Receipt Date: 20110114
  Transmission Date: 20110831
  Serious: No
  Sender: FDA-Public Use
  Company Number: 017956

PATIENT
  Sex: Female

DRUGS (1)
  1. CIMZIA [Suspect]
     Indication: RHEUMATOID ARTHRITIS
     Dosage: (SUBCUTANEOUS)
     Route: 058
     Dates: start: 20100513

REACTIONS (6)
  - DIZZINESS [None]
  - DYSGEUSIA [None]
  - RHEUMATOID ARTHRITIS [None]
  - BLOOD PRESSURE INCREASED [None]
  - MALAISE [None]
  - PYREXIA [None]
